FAERS Safety Report 15995424 (Version 1)
Quarter: 2019Q1

REPORT INFORMATION
  Report Type: Spontaneous
  Country: NL (occurrence: NL)
  Receive Date: 20190222
  Receipt Date: 20190222
  Transmission Date: 20190418
  Serious: Yes (Hospitalization)
  Sender: FDA-Public Use
  Company Number: NL-TEVA-2019-NL-1014376

PATIENT
  Age: 59 Year
  Sex: Male
  Weight: 97 kg

DRUGS (5)
  1. CLOPIDOGREL [Suspect]
     Active Substance: CLOPIDOGREL BISULFATE
     Indication: THROMBOSIS PROPHYLAXIS
     Dosage: ONE-TIME ADMINISTRATION
     Route: 065
     Dates: start: 20190103
  2. METOPROLOLSUCCINAAT SANDOS [Concomitant]
  3. PANTOPRAZOL 40 [Concomitant]
     Active Substance: PANTOPRAZOLE SODIUM
  4. NIFEDIPINE 30 [Concomitant]
  5. LISINOPRIL. [Concomitant]
     Active Substance: LISINOPRIL

REACTIONS (4)
  - Nausea [Not Recovered/Not Resolved]
  - Dizziness [Not Recovered/Not Resolved]
  - Pain [Not Recovered/Not Resolved]
  - Tremor [Not Recovered/Not Resolved]

NARRATIVE: CASE EVENT DATE: 20190202
